FAERS Safety Report 5025933-7 (Version None)
Quarter: 2006Q2

REPORT INFORMATION
  Report Type: 
  Country: None (occurrence: None)
  Receive Date: 20060614
  Receipt Date: 20060518
  Transmission Date: 20061013
  Serious: Yes (Other)
  Sender: FDA-Public Use
  Company Number: JP-JPN-A200601640

PATIENT
  Age: 80 Year
  Sex: Female

DRUGS (1)
  1. PAXIL [Suspect]
     Indication: DRUG USE FOR UNKNOWN INDICATION
     Route: 048
     Dates: start: 20060427

REACTIONS (4)
  - CONSTIPATION [None]
  - ILEUS [None]
  - NAUSEA [None]
  - PYREXIA [None]
